FAERS Safety Report 11762699 (Version 2)
Quarter: 2016Q1

REPORT INFORMATION
  Report Type: Spontaneous
  Country: US (occurrence: US)
  Receive Date: 20151120
  Receipt Date: 20160212
  Transmission Date: 20160525
  Serious: No
  Sender: FDA-Public Use
  Company Number: US-009507513-1511USA003095

PATIENT
  Age: 21 Year
  Sex: Female

DRUGS (2)
  1. NEXPLANON [Suspect]
     Active Substance: ETONOGESTREL
     Dosage: UNK
     Route: 059
     Dates: end: 20151023
  2. NEXPLANON [Suspect]
     Active Substance: ETONOGESTREL
     Dosage: UNK
     Route: 059
     Dates: start: 20151021

REACTIONS (5)
  - Overdose [Unknown]
  - Device difficult to use [Recovered/Resolved]
  - Device dislocation [Unknown]
  - Incorrect drug administration duration [Unknown]
  - Device deployment issue [Unknown]

NARRATIVE: CASE EVENT DATE: 20151021
